FAERS Safety Report 4749495-4 (Version None)
Quarter: 2005Q3

REPORT INFORMATION
  Report Type: 
  Country: None (occurrence: None)
  Receive Date: 20050819
  Receipt Date: 20050728
  Transmission Date: 20060218
  Serious: Yes (Other)
  Sender: FDA-Public Use
  Company Number: CIO05013056

PATIENT
  Age: 14 Year
  Sex: Male
  Weight: 40.8 kg

DRUGS (1)
  1. DAYQUIL COLD + FLU RELIEF (DEXTROMETHORPHAN HYDROBROMIDE 20 OR 30 MG, [Suspect]
     Dosage: 1 LIQCAP, 1 ONLY FOR 1 DAY, ORAL
     Route: 048

REACTIONS (18)
  - ANAPHYLACTIC REACTION [None]
  - ASTHMA [None]
  - CARDIAC DISORDER [None]
  - CHEST PAIN [None]
  - CHOKING [None]
  - DYSPHONIA [None]
  - DYSPNOEA [None]
  - FOOD ALLERGY [None]
  - HYPERSENSITIVITY [None]
  - LABORATORY TEST ABNORMAL [None]
  - MALAISE [None]
  - PANIC ATTACK [None]
  - REACTION TO PRESERVATIVES [None]
  - RESPIRATORY ARREST [None]
  - SPEECH DISORDER [None]
  - THROAT TIGHTNESS [None]
  - UNEVALUABLE EVENT [None]
  - VOMITING [None]
